FAERS Safety Report 9700717 (Version 1)
Quarter: 2013Q4

REPORT INFORMATION
  Report Type: Spontaneous
  Country: US (occurrence: US)
  Receive Date: 20131121
  Receipt Date: 20131121
  Transmission Date: 20140711
  Serious: No
  Sender: FDA-Public Use
  Company Number: US-PFIZER INC-2013332325

PATIENT
  Age: 65 Year
  Sex: Male
  Weight: 95.24 kg

DRUGS (2)
  1. NEURONTIN [Suspect]
     Indication: NEUROPATHY PERIPHERAL
     Dosage: 200 MG, 3X/DAY
  2. NEURONTIN [Suspect]
     Indication: NERVE INJURY

REACTIONS (2)
  - Nervousness [Unknown]
  - Drug ineffective [Unknown]
